FAERS Safety Report 4691114-X (Version None)
Quarter: 2005Q2

REPORT INFORMATION
  Report Type: 
  Country: None (occurrence: None)
  Receive Date: 20050610
  Receipt Date: 20050603
  Transmission Date: 20051028
  Serious: Yes (Other)
  Sender: FDA-Public Use
  Company Number: 2005-05-2221

PATIENT
  Age: 58 Year
  Sex: Female

DRUGS (2)
  1. GENTAMICIN SULFATE [Suspect]
     Dosage: TOPICAL
     Route: 061
  2. .......... [Concomitant]

REACTIONS (1)
  - DERMATITIS CONTACT [None]
